FAERS Safety Report 7112281-4 (Version None)
Quarter: 2010Q4

REPORT INFORMATION
  Report Type: 
  Country: None (occurrence: None)
  Receive Date: 20101119
  Receipt Date: 20100525
  Transmission Date: 20110411
  Serious: No
  Sender: FDA-Public Use
  Company Number: A0861228A

PATIENT
  Sex: Male

DRUGS (3)
  1. AVODART [Suspect]
     Indication: BENIGN PROSTATIC HYPERPLASIA
     Dosage: 5TAB PER DAY
     Route: 048
  2. OXYCODONE HCL [Concomitant]
  3. ZANTAC [Concomitant]

REACTIONS (1)
  - DRUG INEFFECTIVE [None]
